FAERS Safety Report 5509496-5 (Version None)
Quarter: 2007Q4

REPORT INFORMATION
  Report Type: 
  Country: None (occurrence: None)
  Receive Date: 20071107
  Receipt Date: 20071026
  Transmission Date: 20080405
  Serious: Yes (Hospitalization)
  Sender: FDA-Public Use
  Company Number: CH-PFIZER INC-2007090115

PATIENT
  Age: 54 Year
  Sex: Female
  Weight: 50 kg

DRUGS (4)
  1. SALAZOPYRIN [Suspect]
     Indication: OSTEOARTHRITIS
     Route: 048
     Dates: start: 20030101, end: 20071005
  2. PREDNISONE [Concomitant]
     Route: 048
  3. FLOXAPEN [Concomitant]
     Route: 042
     Dates: start: 20070930, end: 20071012
  4. CLINDAMYCIN HCL [Concomitant]
     Route: 048

REACTIONS (6)
  - MALAISE [None]
  - NAUSEA [None]
  - NIGHT SWEATS [None]
  - PYREXIA [None]
  - SYSTEMIC LUPUS ERYTHEMATOSUS [None]
  - WEIGHT DECREASED [None]
